FAERS Safety Report 15222483 (Version 2)
Quarter: 2018Q3

REPORT INFORMATION
  Report Type: Spontaneous
  Country: CA (occurrence: CA)
  Receive Date: 20180731
  Receipt Date: 20180808
  Transmission Date: 20181010
  Serious: Yes (Other)
  Sender: FDA-Public Use
  Company Number: CA-CELLTRION INC.-2017CA015836

PATIENT

DRUGS (8)
  1. INFLECTRA [Suspect]
     Active Substance: INFLIXIMAB-DYYB
     Dosage: 408 MG, CYCLIC (EVERY 0, 2, 6 WEEKS, THEN EVERY 8 WEEKS)
     Route: 042
     Dates: start: 20171110, end: 20171110
  2. INFLECTRA [Suspect]
     Active Substance: INFLIXIMAB-DYYB
     Dosage: 408 MG, Q 0, 2, 6 WEEKS, THEN EVERY 8 WEEKS
     Route: 042
     Dates: start: 20180525
  3. INFLECTRA [Suspect]
     Active Substance: INFLIXIMAB-DYYB
     Dosage: 408 MG, CYCLIC (EVERY 0, 2, 6 WEEKS, THEN EVERY 8 WEEKS)
     Route: 042
     Dates: start: 20180201
  4. SALOFALK                           /00000301/ [Concomitant]
     Active Substance: MESALAMINE
     Dosage: 4 G, DAILY
     Route: 065
  5. INFLECTRA [Suspect]
     Active Substance: INFLIXIMAB-DYYB
     Dosage: 408 MG, Q 0, 2, 6 WEEKS, THEN EVERY 8 WEEKS
     Route: 065
     Dates: start: 20180328
  6. INFLECTRA [Suspect]
     Active Substance: INFLIXIMAB-DYYB
     Indication: COLITIS ULCERATIVE
     Dosage: 408 MG, CYCLIC (EVERY 0, 2, 6 WEEKS, THEN EVERY 8 WEEKS)
     Route: 042
     Dates: start: 20171027
  7. INFLECTRA [Suspect]
     Active Substance: INFLIXIMAB-DYYB
     Dosage: 408 MG, CYCLIC (EVERY 0, 2, 6 WEEKS, THEN EVERY 8 WEEKS)
     Route: 042
     Dates: start: 20180201
  8. BUDESONIDE. [Concomitant]
     Active Substance: BUDESONIDE
     Dosage: UNK NIGHTLY
     Route: 065

REACTIONS (12)
  - Unresponsive to stimuli [Unknown]
  - Loss of consciousness [Recovered/Resolved]
  - Drug level above therapeutic [Unknown]
  - Blood pressure increased [Unknown]
  - Injection site pain [Unknown]
  - Drug ineffective [Recovering/Resolving]
  - Confusional state [Unknown]
  - Blood pressure fluctuation [Unknown]
  - Nasopharyngitis [Unknown]
  - Fatigue [Unknown]
  - Infusion site swelling [Unknown]
  - Seizure [Recovered/Resolved]

NARRATIVE: CASE EVENT DATE: 2017
